FAERS Safety Report 5732171-9 (Version None)
Quarter: 2008Q2

REPORT INFORMATION
  Report Type: 
  Country: None (occurrence: None)
  Receive Date: 20080508
  Receipt Date: 20080425
  Transmission Date: 20081010
  Serious: Yes (Hospitalization, Other)
  Sender: FDA-Public Use
  Company Number: US-ELI_LILLY_AND_COMPANY-US200804001865

PATIENT
  Sex: Female

DRUGS (2)
  1. FORTEO [Suspect]
     Dosage: 750 MCG/ 3ML
  2. FORTEO [Suspect]
     Dosage: UNK, UNK
     Dates: end: 20080321

REACTIONS (1)
  - HIP SURGERY [None]
